FAERS Safety Report 7470265-0 (Version None)
Quarter: 2011Q2

REPORT INFORMATION
  Report Type: 
  Country: None (occurrence: None)
  Receive Date: 20110510
  Receipt Date: 20110506
  Transmission Date: 20111010
  Serious: Yes (Other)
  Sender: FDA-Public Use
  Company Number: BR-ABBOTT-09P-020-0607972-00

PATIENT
  Sex: Female
  Weight: 79 kg

DRUGS (16)
  1. METHOTREXATE [Concomitant]
     Indication: INFECTION
     Route: 048
     Dates: start: 20060101
  2. DOLAMIN [Concomitant]
     Indication: PAIN
     Dosage: WHEN NECESSARY
     Route: 048
  3. HUMIRA [Suspect]
     Indication: RHEUMATOID ARTHRITIS
     Route: 058
     Dates: start: 20050218, end: 20110201
  4. FOLIC ACID [Concomitant]
     Indication: RHEUMATOID ARTHRITIS
     Route: 048
     Dates: start: 20050101, end: 20110101
  5. NAPROXEN SODIUM [Concomitant]
     Indication: ANTIINFLAMMATORY THERAPY
     Route: 048
     Dates: start: 20090101
  6. HUMIRA [Suspect]
     Dates: end: 20101118
  7. CELECOXIB [Concomitant]
     Indication: PAIN
     Dosage: WHEN NECESSARY
     Route: 048
  8. PREDNISONE [Concomitant]
     Indication: PAIN
     Route: 048
  9. PURAN T4 [Concomitant]
     Indication: THYROID DISORDER
  10. MESALAMINE [Concomitant]
     Indication: COLITIS
     Route: 048
  11. AMITRIPTYLINE HCL [Concomitant]
     Indication: BLOOD PRESSURE
     Route: 048
  12. METHOTREXATE [Concomitant]
     Indication: RHEUMATOID ARTHRITIS
     Dosage: 5 PER WEEK
     Route: 048
     Dates: start: 20050101, end: 20110101
  13. METHOTREXATE [Concomitant]
     Route: 048
  14. FOLIC ACID [Concomitant]
     Route: 048
     Dates: start: 20060101
  15. PURAN T4 [Concomitant]
     Indication: HYPERTHYROIDISM
     Route: 048
     Dates: start: 20050101
  16. FOLIC ACID [Concomitant]
     Indication: VITAMIN SUPPLEMENTATION
     Route: 048

REACTIONS (36)
  - INTESTINAL POLYP [None]
  - DIABETES MELLITUS [None]
  - TUBERCULIN TEST POSITIVE [None]
  - HAND DEFORMITY [None]
  - CHEILITIS [None]
  - CATARACT [None]
  - BLOOD PRESSURE INCREASED [None]
  - WRIST DEFORMITY [None]
  - HYPERTENSION [None]
  - ORAL DISORDER [None]
  - APPLICATION SITE ERYTHEMA [None]
  - TINEA PEDIS [None]
  - GINGIVITIS [None]
  - COLITIS [None]
  - SKIN DISCOLOURATION [None]
  - ARRHYTHMIA [None]
  - PAIN IN EXTREMITY [None]
  - PYREXIA [None]
  - DIARRHOEA [None]
  - ANAEMIA [None]
  - POLYP COLORECTAL [None]
  - ALOPECIA [None]
  - INFLUENZA [None]
  - GINGIVAL DISORDER [None]
  - APHTHOUS STOMATITIS [None]
  - ONYCHOMYCOSIS [None]
  - INFLAMMATION [None]
  - ONYCHOCLASIS [None]
  - DUODENAL POLYP [None]
  - FEELING HOT [None]
  - GASTRIC DISORDER [None]
  - TOOTH DISORDER [None]
  - FEELING COLD [None]
  - OEDEMA PERIPHERAL [None]
  - GASTRITIS [None]
  - JOINT SWELLING [None]
